FAERS Safety Report 4714220-X (Version None)
Quarter: 2005Q2

REPORT INFORMATION
  Report Type: 
  Country: None (occurrence: None)
  Receive Date: 20050630
  Receipt Date: 20040928
  Transmission Date: 20051028
  Serious: Yes (Hospitalization)
  Sender: FDA-Public Use
  Company Number: WAES 0409USA02458

PATIENT
  Age: 72 Year
  Sex: Female
  Weight: 90.7194 kg

DRUGS (7)
  1. HYZAAR [Suspect]
     Indication: HYPERTENSION
     Dosage: 50/12.5 MG/DAILY/PO
     Route: 048
     Dates: start: 20011212, end: 20040920
  2. ZOCOR [Concomitant]
  3. ASPIRIN [Concomitant]
  4. GASTROINTESTINAL PREPARATIONS [Concomitant]
  5. NIFEDIPINE [Concomitant]
  6. NITROFURANTOIN [Concomitant]
  7. NITROGLYCERIN [Concomitant]

REACTIONS (2)
  - CHEST PAIN [None]
  - SYNCOPE [None]
